FAERS Safety Report 4296066-2 (Version None)
Quarter: 2004Q1

REPORT INFORMATION
  Report Type: 
  Country: None (occurrence: None)
  Receive Date: 20040212
  Receipt Date: 20040130
  Transmission Date: 20041129
  Serious: Yes (Hospitalization, Congenital Anomaly)
  Sender: FDA-Public Use
  Company Number: 2003AP04153

PATIENT
  Age: 51 Year
  Sex: Male

DRUGS (7)
  1. ACCOLATE [Suspect]
     Indication: ASTHMA
     Dosage: 40 MG DAILY PO
     Route: 048
     Dates: start: 20030322, end: 20031029
  2. BASEN [Suspect]
     Indication: DIABETES MELLITUS
     Dosage: 0.6 MG DAILY PO
     Route: 048
     Dates: start: 20030310
  3. CLEANAL [Concomitant]
  4. UNIPHYL [Concomitant]
  5. PRODEC [Concomitant]
  6. DOMENAN [Concomitant]
  7. PROTECADIN [Concomitant]

REACTIONS (8)
  - ANOREXIA [None]
  - BLOOD GLUCOSE INCREASED [None]
  - DRUG INTERACTION [None]
  - GASTRIC ULCER [None]
  - HEPATIC FUNCTION ABNORMAL [None]
  - HEPATIC STEATOSIS [None]
  - HEPATITIS ACUTE [None]
  - VOMITING [None]
